FAERS Safety Report 5685750-1 (Version None)
Quarter: 2008Q1

REPORT INFORMATION
  Report Type: 
  Country: None (occurrence: None)
  Receive Date: 20080328
  Receipt Date: 20080313
  Transmission Date: 20080703
  Serious: Yes (Hospitalization, Other)
  Sender: FDA-Public Use
  Company Number: FR-BAYER-200815235GPV

PATIENT
  Age: 38 Year
  Sex: Male

DRUGS (1)
  1. IZILOX [Suspect]
     Indication: BRONCHITIS
     Dosage: TOTAL DAILY DOSE: 400 MG  UNIT DOSE: 400 MG
     Route: 048
     Dates: start: 20080310, end: 20080311

REACTIONS (2)
  - MYALGIA [None]
  - MYOSITIS [None]
